FAERS Safety Report 7644783-6 (Version None)
Quarter: 2011Q3

REPORT INFORMATION
  Report Type: 
  Country: None (occurrence: None)
  Receive Date: 20110729
  Receipt Date: 20110719
  Transmission Date: 20111222
  Serious: Yes (Other)
  Sender: FDA-Public Use
  Company Number: DE-UCBSA-019643

PATIENT
  Sex: Female

DRUGS (3)
  1. ARAVA [Concomitant]
     Indication: POLYARTHRITIS
     Route: 048
     Dates: start: 20000701
  2. PREDNISONE [Concomitant]
     Indication: POLYARTHRITIS
     Route: 048
     Dates: start: 20000101
  3. CIMZIA [Suspect]
     Indication: RHEUMATOID ARTHRITIS
     Route: 058
     Dates: start: 20100701, end: 20100901

REACTIONS (1)
  - PSORIASIS [None]
